FAERS Safety Report 9915623 (Version 1)
Quarter: 2014Q1

REPORT INFORMATION
  Report Type: Spontaneous
  Country: GB (occurrence: None)
  Receive Date: 20140218
  Receipt Date: 20140218
  Transmission Date: 20141002
  Serious: Yes (Other)
  Sender: FDA-Public Use
  Company Number: AUR-APL-2014-01541

PATIENT
  Age: 53 Year
  Sex: Female

DRUGS (3)
  1. ALENDRONIC ACID [Suspect]
     Indication: OSTEOPOROSIS
     Dosage: 10 MG (70 MG, 1 IN 1 WK) , ORAL
     Route: 048
     Dates: start: 2004, end: 2012
  2. SYMBICORT (BUDESONIDE W/FORMOTEROL FUMARATE) [Concomitant]
  3. TERBUTALINE (TERBUTALINE) NEBULISER SOLUTION, 5MG/2ML [Concomitant]

REACTIONS (3)
  - Tooth loss [None]
  - Tooth abscess [None]
  - Loose tooth [None]
